FAERS Safety Report 6846516-X (Version None)
Quarter: 2010Q3

REPORT INFORMATION
  Report Type: 
  Country: None (occurrence: None)
  Receive Date: 20100715
  Receipt Date: 20070918
  Transmission Date: 20110219
  Serious: No
  Sender: FDA-Public Use
  Company Number: US-PFIZER INC-2007079259

PATIENT
  Sex: Female
  Weight: 72.727 kg

DRUGS (5)
  1. CHANTIX [Suspect]
     Indication: SMOKING CESSATION THERAPY
     Route: 048
     Dates: start: 20070830, end: 20070910
  2. ACETYLSALICYLIC ACID [Concomitant]
  3. SYNTHROID [Concomitant]
  4. CYTOMEL [Concomitant]
  5. TRAVATAN [Concomitant]
     Indication: GLAUCOMA

REACTIONS (3)
  - BACK PAIN [None]
  - BLOOD CREATININE ABNORMAL [None]
  - BLOOD PHOSPHORUS ABNORMAL [None]
